FAERS Safety Report 14670491 (Version 1)
Quarter: 2018Q1

REPORT INFORMATION
  Report Type: Report from Study
  Country: US (occurrence: US)
  Receive Date: 20180322
  Receipt Date: 20180322
  Transmission Date: 20180509
  Serious: No
  Sender: FDA-Public Use
  Company Number: US-AMGEN-USACT2018035047

PATIENT
  Age: 33 Year
  Sex: Female

DRUGS (6)
  1. TYLENOL [Concomitant]
     Active Substance: ACETAMINOPHEN
     Dosage: UNK UNK, AS NECESSARY
  2. METHYLPREDNISOLONE. [Concomitant]
     Active Substance: METHYLPREDNISOLONE
     Dosage: UNK UNK, AS NECESSARY
  3. BENADRYL [Concomitant]
     Active Substance: DIPHENHYDRAMINE HYDROCHLORIDE
     Dosage: UNK
  4. TALIMOGENE LAHERPAREPVEC [Suspect]
     Active Substance: TALIMOGENE LAHERPAREPVEC
     Indication: TRIPLE NEGATIVE BREAST CANCER
     Dosage: 2 ML, QD
     Route: 065
     Dates: start: 20180104
  5. PACLITAXEL. [Concomitant]
     Active Substance: PACLITAXEL
     Dosage: UNK
  6. DEXAMETHASONE. [Concomitant]
     Active Substance: DEXAMETHASONE
     Dosage: UNK

REACTIONS (1)
  - Genital herpes [Not Recovered/Not Resolved]
